FAERS Safety Report 7933613-0 (Version None)
Quarter: 2011Q4

REPORT INFORMATION
  Report Type: 
  Country: None (occurrence: None)
  Receive Date: 20111122
  Receipt Date: 20111115
  Transmission Date: 20120403
  Serious: Yes (Other)
  Sender: FDA-Public Use
  Company Number: US-ABBOTT-11P-163-0874346-00

PATIENT
  Sex: Male
  Weight: 104.42 kg

DRUGS (12)
  1. SIMCOR [Suspect]
     Indication: BLOOD CHOLESTEROL INCREASED
     Route: 048
     Dates: end: 20110801
  2. CELEBREX [Concomitant]
     Indication: PSORIATIC ARTHROPATHY
     Route: 048
  3. METHOTREXATE [Concomitant]
     Indication: ARTHRITIS
  4. HYDROCODONE BITARTRATE [Concomitant]
     Indication: PAIN
     Route: 048
  5. NIASPAN [Concomitant]
     Indication: BLOOD CHOLESTEROL INCREASED
  6. OMEPRAZOLE [Concomitant]
     Indication: GASTROOESOPHAGEAL REFLUX DISEASE
     Route: 048
  7. REMICADE [Suspect]
     Indication: PSORIATIC ARTHROPATHY
     Route: 042
  8. BENAZEPRIL HYDROCHLORIDE [Concomitant]
     Indication: HYPERTENSION
     Route: 048
  9. ACTONEL [Concomitant]
     Indication: OSTEOPOROSIS
     Route: 048
     Dates: start: 20060101
  10. HYDROCODONE BITARTRATE [Concomitant]
     Indication: PSORIATIC ARTHROPATHY
  11. FOLIC ACID [Concomitant]
     Indication: HYPOVITAMINOSIS
     Route: 048
  12. CRESTOR [Concomitant]
     Indication: BLOOD CHOLESTEROL INCREASED

REACTIONS (6)
  - PSORIATIC ARTHROPATHY [None]
  - TENDON RUPTURE [None]
  - EAR INFECTION [None]
  - ARTHRALGIA [None]
  - TENDERNESS [None]
  - DRUG INEFFECTIVE [None]
